FAERS Safety Report 9522603 (Version 1)
Quarter: 2013Q1

REPORT INFORMATION
  Report Type: Spontaneous
  Country: US (occurrence: None)
  Receive Date: 20130305
  Receipt Date: 20130305
  Transmission Date: 20140127
  Serious: Yes (Other)
  Sender: FDA-Public Use
  Company Number: 163-21880-12032262

PATIENT
  Age: 78 Year
  Sex: Male

DRUGS (9)
  1. REVLIMID (LENALIDOMIDE) (25 MILLIGRAM, CAPSULES) [Suspect]
     Route: 048
     Dates: start: 201201, end: 201202
  2. ALKA-SELTZER (ALKA-SELTZER) (UNKNOWN) [Concomitant]
  3. ASPIRIN (UNKNOWN) [Concomitant]
  4. DEXAMETHASONE (DEXAMETHASONE) (UNKNOWN) [Concomitant]
  5. FOLBIC (HEPAGRISEVIT FORTE-N TABLET) (UNKNOWN) [Concomitant]
  6. NEURONTIN (GABAPENTIN) (UNKNOWN) [Concomitant]
  7. PRILOSEC (OMEPRAZOLE) (UNKNOWN) [Concomitant]
  8. SLO-NIACIN (NICOTINIC ACID) (UNKNOWN) [Concomitant]
  9. SYNTHROID (LEVOTHYROXINE SODIUM) (UNKNOWN) [Concomitant]

REACTIONS (2)
  - Thrombosis [None]
  - Pulmonary embolism [None]
